FAERS Safety Report 22622785 (Version 1)
Quarter: 2023Q2

REPORT INFORMATION
  Report Type: Other
  Country: FR (occurrence: FR)
  Receive Date: 20230621
  Receipt Date: 20230621
  Transmission Date: 20230721
  Serious: Yes (Hospitalization)
  Sender: FDA-Public Use
  Company Number: None

PATIENT

DRUGS (5)
  1. PAROXETINE [Suspect]
     Active Substance: PAROXETINE
     Indication: Toxicity to various agents
     Dosage: 117 DOSAGE FORM
     Route: 048
     Dates: start: 20230504
  2. ZOPICLONE [Suspect]
     Active Substance: ZOPICLONE
     Indication: Toxicity to various agents
     Dosage: 28 DOSAGE FORM
     Route: 048
     Dates: start: 20230504
  3. TRIMEPRAZINE [Suspect]
     Active Substance: TRIMEPRAZINE
     Indication: Toxicity to various agents
     Dosage: 100 DOSAGE FORM
     Route: 048
     Dates: start: 20230504
  4. DOLIPRANE [Suspect]
     Active Substance: ACETAMINOPHEN
     Indication: Toxicity to various agents
     Dosage: 44 DOSAGE FORM
     Route: 048
     Dates: start: 20230504
  5. HYDROXYZINE HYDROCHLORIDE [Suspect]
     Active Substance: HYDROXYZINE HYDROCHLORIDE
     Indication: Toxicity to various agents
     Dosage: 14 DOSAGE FORM
     Route: 048
     Dates: start: 20230504

REACTIONS (5)
  - Cardio-respiratory arrest [Recovered/Resolved]
  - Hepatic cytolysis [Recovered/Resolved]
  - Acute kidney injury [Not Recovered/Not Resolved]
  - Coma [Recovered/Resolved]
  - Toxicity to various agents [Recovering/Resolving]

NARRATIVE: CASE EVENT DATE: 20230504
